FAERS Safety Report 4471766-X (Version None)
Quarter: 2004Q4

REPORT INFORMATION
  Report Type: 
  Country: None (occurrence: None)
  Receive Date: 20041007
  Receipt Date: 20040923
  Transmission Date: 20050328
  Serious: Yes (Hospitalization)
  Sender: FDA-Public Use
  Company Number: 2004235592DE

PATIENT
  Age: 77 Year
  Sex: Female
  Weight: 70 kg

DRUGS (9)
  1. BEXTRA [Suspect]
     Indication: BACK PAIN
     Dosage: 20 MG, QD, ORAL
     Route: 048
     Dates: start: 20040405, end: 20040415
  2. ARICEPT [Suspect]
     Indication: DEMENTIA ALZHEIMER'S TYPE
     Dosage: 5 MG, QD, ORAL
     Route: 048
     Dates: start: 20010101
  3. ALDACTONE [Suspect]
     Indication: HYPERTENSION
     Dosage: 25 MG, QD, ORAL
     Route: 048
     Dates: start: 19990101, end: 20040531
  4. DIGITOXIN TAB [Suspect]
     Indication: ATRIAL FIBRILLATION
     Dosage: 0.07 MG, QD, 5 X WEEK, ORAL
     Route: 048
     Dates: start: 19940101, end: 20040531
  5. ENALAPRIL NM   (ENALAPRIL MALEATE) [Suspect]
     Indication: HYPERTENSION
     Dosage: 10 MG, QD, ORAL
     Route: 048
     Dates: start: 19990101, end: 20040531
  6. SPIRONOLACTONE AND HYDROCHLOROTHIAZIDE [Suspect]
     Indication: HYPERTENSION
     Dosage: 40 MG, QD, ORAL
     Route: 048
     Dates: start: 19990101
  7. CALAN   (VERAPAMIL) [Suspect]
     Indication: ATRIAL FIBRILLATION
     Dosage: 80 MG, TID, ORAL
     Route: 048
     Dates: start: 20010101, end: 20040531
  8. CLOPIDOGREL BISULFATE [Suspect]
     Indication: THROMBOSIS PROPHYLAXIS
     Dosage: 75 MG, QD, ORAL
     Route: 048
     Dates: start: 20010101
  9. INSULIN [Concomitant]

REACTIONS (12)
  - BLOOD PRESSURE DECREASED [None]
  - BRADYCARDIA [None]
  - DIALYSIS [None]
  - DIZZINESS [None]
  - DRUG INTERACTION [None]
  - FLUID INTAKE REDUCED [None]
  - GENERAL PHYSICAL HEALTH DETERIORATION [None]
  - HYPERKALAEMIA [None]
  - NAUSEA [None]
  - RENAL FAILURE [None]
  - TACHYCARDIA [None]
  - VOMITING [None]
